FAERS Safety Report 5658001-1 (Version None)
Quarter: 2008Q1

REPORT INFORMATION
  Report Type: 
  Country: None (occurrence: None)
  Receive Date: 20080306
  Receipt Date: 20080220
  Transmission Date: 20080703
  Serious: Yes (Hospitalization, Other)
  Sender: FDA-Public Use
  Company Number: 2007S1009796

PATIENT
  Age: 25 Year
  Sex: Female
  Weight: 118.3888 kg

DRUGS (4)
  1. AMNESTEEM [Suspect]
     Dosage: 40 MG; TWICE A DAY; ORAL; 40 MG; TWICE A DAY; ORAL; 40 MG; DAILY; ORAL
     Route: 048
     Dates: start: 20070109, end: 20070514
  2. AMNESTEEM [Suspect]
     Dosage: 40 MG; TWICE A DAY; ORAL; 40 MG; TWICE A DAY; ORAL; 40 MG; DAILY; ORAL
     Route: 048
     Dates: start: 20070827, end: 20070827
  3. AMNESTEEM [Suspect]
     Dosage: 40 MG; TWICE A DAY; ORAL; 40 MG; TWICE A DAY; ORAL; 40 MG; DAILY; ORAL
     Route: 048
     Dates: start: 20070828, end: 20070828
  4. TRI-LEVLEN 28 [Concomitant]

REACTIONS (10)
  - ABDOMINAL PAIN [None]
  - CERVICAL CYST [None]
  - DRUG EXPOSURE DURING PREGNANCY [None]
  - MENORRHAGIA [None]
  - METRORRHAGIA [None]
  - PREGNANCY [None]
  - PREMATURE LABOUR [None]
  - STILLBIRTH [None]
  - TREATMENT NONCOMPLIANCE [None]
  - VOMITING [None]
